FAERS Safety Report 14867501 (Version 3)
Quarter: 2019Q3

REPORT INFORMATION
  Report Type: Spontaneous
  Country: US (occurrence: US)
  Receive Date: 20180508
  Receipt Date: 20190906
  Transmission Date: 20191004
  Serious: Yes (Other)
  Sender: FDA-Public Use
  Company Number: US-ASTRAZENECA-2018SE54881

PATIENT
  Age: 23967 Day
  Sex: Female

DRUGS (35)
  1. METOPROLOL. [Concomitant]
     Active Substance: METOPROLOL
  2. SERROUS ZOLFATE [Concomitant]
     Indication: ANAEMIA
  3. FOLIC ACID. [Concomitant]
     Active Substance: FOLIC ACID
     Indication: ANAEMIA
  4. TRAMAVOL [Concomitant]
     Indication: BACK PAIN
     Dates: start: 20150407
  5. ALBUTEROL. [Concomitant]
     Active Substance: ALBUTEROL
     Indication: CHRONIC OBSTRUCTIVE PULMONARY DISEASE
     Dates: start: 20170517
  6. NEXIUM 24HR [Suspect]
     Active Substance: ESOMEPRAZOLE MAGNESIUM
     Indication: GASTROOESOPHAGEAL REFLUX DISEASE
     Route: 048
     Dates: start: 2014
  7. PROAIR HFA [Concomitant]
     Active Substance: ALBUTEROL SULFATE
  8. BITALOPRAM HYDROBROMIDE [Concomitant]
     Indication: DEPRESSION
     Dates: start: 20180222
  9. PRILOSEC [Suspect]
     Active Substance: OMEPRAZOLE MAGNESIUM
     Indication: GASTROOESOPHAGEAL REFLUX DISEASE
     Route: 048
     Dates: start: 2014
  10. PRILOSEC [Suspect]
     Active Substance: OMEPRAZOLE MAGNESIUM
     Indication: GASTROOESOPHAGEAL REFLUX DISEASE
     Dosage: OMEPRAZOLE
     Route: 065
     Dates: start: 2016, end: 2018
  11. ASPIRIN. [Concomitant]
     Active Substance: ASPIRIN
  12. ACCUPRIL [Concomitant]
     Active Substance: QUINAPRIL HYDROCHLORIDE
  13. BITALOPRAM HYDROBROMIDE [Concomitant]
     Indication: ANXIETY
     Dates: start: 20180222
  14. POTASSIUM [Concomitant]
     Active Substance: POTASSIUM
     Indication: ILL-DEFINED DISORDER
     Dates: start: 20180410
  15. BILTIAZEM [Concomitant]
     Indication: CARDIAC FAILURE CONGESTIVE
     Dates: start: 20171120
  16. VITAMINS [Concomitant]
     Active Substance: VITAMINS
     Indication: ROUTINE HEALTH MAINTENANCE
  17. PRILOSEC OTC [Suspect]
     Active Substance: OMEPRAZOLE MAGNESIUM
     Route: 048
  18. PROTONIX [Suspect]
     Active Substance: PANTOPRAZOLE SODIUM
     Route: 065
  19. CALCITRIOL. [Concomitant]
     Active Substance: CALCITRIOL
  20. PREVACID [Suspect]
     Active Substance: LANSOPRAZOLE
     Route: 065
  21. TORSEMIBE [Concomitant]
     Indication: OEDEMA
     Dates: start: 20170512
  22. PREVACID 24 HR [Suspect]
     Active Substance: LANSOPRAZOLE
     Route: 065
  23. ALPRAVOLAM [Concomitant]
     Indication: ANXIETY
     Dates: start: 20140905
  24. ALPRAVOLAM [Concomitant]
     Indication: DEPRESSION
     Dates: start: 20140905
  25. DILTIAZEM HCI [Concomitant]
     Indication: CHRONIC KIDNEY DISEASE
     Dates: start: 20190617
  26. ATORVASCATIN [Concomitant]
     Indication: BLOOD CALCIUM ABNORMAL
     Dates: start: 20170912
  27. NEXIUM [Suspect]
     Active Substance: ESOMEPRAZOLE MAGNESIUM
     Indication: GASTROOESOPHAGEAL REFLUX DISEASE
     Route: 048
     Dates: start: 2014
  28. LORATADINE. [Concomitant]
     Active Substance: LORATADINE
  29. MUCINEX [Concomitant]
     Active Substance: GUAIFENESIN
     Indication: RHINITIS ALLERGIC
     Dates: start: 20180424
  30. ELIQUISE [Concomitant]
     Indication: ATRIAL FIBRILLATION
     Dates: start: 20171011
  31. SIMBICORT [Concomitant]
     Active Substance: BUDESONIDE\FORMOTEROL FUMARATE
     Indication: CHRONIC OBSTRUCTIVE PULMONARY DISEASE
     Dates: start: 20140225
  32. DEXILANT [Suspect]
     Active Substance: DEXLANSOPRAZOLE
     Route: 065
  33. RANITIDINE HYDROCHLORIDE. [Concomitant]
     Active Substance: RANITIDINE HYDROCHLORIDE
     Indication: GASTROOESOPHAGEAL REFLUX DISEASE
     Dates: start: 20160211
  34. IPRATROPIUM DROMIDE [Concomitant]
     Indication: CHRONIC OBSTRUCTIVE PULMONARY DISEASE
     Dosage: .02
     Dates: start: 20170517
  35. VITAMIN D2 [Concomitant]
     Active Substance: ERGOCALCIFEROL
     Indication: VITAMIN D DEFICIENCY

REACTIONS (6)
  - Chronic kidney disease [Not Recovered/Not Resolved]
  - End stage renal disease [Unknown]
  - Acute kidney injury [Unknown]
  - Tubulointerstitial nephritis [Unknown]
  - Renal failure [Unknown]
  - Rebound acid hypersecretion [Unknown]

NARRATIVE: CASE EVENT DATE: 20140327
